FAERS Safety Report 23665115 (Version 1)
Quarter: 2024Q1

REPORT INFORMATION
  Report Type: Spontaneous
  Country: GB (occurrence: GB)
  Receive Date: 20240322
  Receipt Date: 20240322
  Transmission Date: 20240409
  Serious: Yes (Death)
  Sender: FDA-Public Use
  Company Number: None

PATIENT
  Age: 87 Year
  Sex: Male

DRUGS (15)
  1. APIXABAN [Suspect]
     Active Substance: APIXABAN
     Indication: Product used for unknown indication
     Dosage: 5 MILLIGRAM, BID
     Route: 048
  2. BECLOMETHASONE\FORMOTEROL [Concomitant]
     Active Substance: BECLOMETHASONE\FORMOTEROL
     Indication: Wheezing
     Dosage: TWO PUFFS TO BE INHALED TWICE A DAY AND 2 EXTRAPUFFS WHEN WHEEZY OR SHORT OF BREATH
     Route: 055
  3. BECLOMETHASONE\FORMOTEROL [Concomitant]
     Active Substance: BECLOMETHASONE\FORMOTEROL
     Indication: Dyspnoea
  4. ALBUTEROL [Concomitant]
     Active Substance: ALBUTEROL
     Dosage: 100 MICROGRAM, ONE OR TWO PUFFS TO BE INHALED FOUR TIMES A DAY WHENREQUIRED -
     Route: 055
  5. HYLO FORTE [Concomitant]
     Dosage: 1 DROPS, 4-6 TIMES DAILY
     Route: 065
  6. OXYCODONE HYDROCHLORIDE [Concomitant]
     Active Substance: OXYCODONE HYDROCHLORIDE
     Dosage: 5 MILLIGRAM, BID
     Route: 048
  7. ACETYLCYSTEINE [Concomitant]
     Active Substance: ACETYLCYSTEINE
     Dosage: 600 MILLIGRAM, QD, (IN THE MORNING)
     Route: 048
  8. OXYCODONE [Concomitant]
     Active Substance: OXYCODONE\OXYCODONE HYDROCHLORIDE
     Indication: Pain
     Dosage: 1.25 MILLIGRAM, 5MG/5ML ORAL SOLUTION SUGAR FREE - 1.25MG EVERY FOUR HOURS AS REQUIRED FOR PAIN
     Route: 048
  9. OMEPRAZOLE [Concomitant]
     Active Substance: OMEPRAZOLE
     Dosage: 10 MILLIGRAM, QD
     Route: 048
  10. SENNA [Concomitant]
     Active Substance: SENNA LEAF\SENNOSIDES\SENNOSIDES A AND B
     Dosage: 15 MILLIGRAM, QD (AT NIGHT)
     Route: 065
  11. LORAZEPAM [Concomitant]
     Active Substance: LORAZEPAM
     Dosage: 1 MILLIGRAM,, HALF OR ONE TABLET AS REQUIRED SUBLINGUALLY - MAXIMUM 4MG A DAY
     Route: 060
  12. BUMETANIDE [Concomitant]
     Active Substance: BUMETANIDE
     Dosage: 1 MILLIGRAM, BID,EACH MORNING AND ONE TO BE TAKEN AT LUNCHTIME
     Route: 048
  13. ALBUTEROL [Concomitant]
     Active Substance: ALBUTEROL
     Dosage: 5MG/2.5ML, FOUR TIMES A DAY OR WHEN REQUIRED
     Route: 048
  14. GLYCERIN [Concomitant]
     Active Substance: GLYCERIN
     Indication: Constipation
     Dosage: 4 GRAM (AS NECESSARY)
     Route: 054
  15. AMILORIDE [Concomitant]
     Active Substance: AMILORIDE
     Dosage: UNK
     Route: 048

REACTIONS (2)
  - Fall [Fatal]
  - Head injury [Fatal]
